FAERS Safety Report 25537746 (Version 2)
Quarter: 2025Q3

REPORT INFORMATION
  Report Type: Spontaneous
  Country: CO (occurrence: CO)
  Receive Date: 20250710
  Receipt Date: 20250715
  Transmission Date: 20251021
  Serious: Yes (Other)
  Sender: BIOVITRUM
  Company Number: CO-BIOVITRUM-2025-CO-009418

PATIENT
  Age: 2 Year
  Sex: Male

DRUGS (12)
  1. NITISINONE [Suspect]
     Active Substance: NITISINONE
     Indication: Tyrosinaemia
     Route: 048
     Dates: start: 201711
  2. NITISINONE [Suspect]
     Active Substance: NITISINONE
     Route: 048
     Dates: start: 201805
  3. NITISINONE [Suspect]
     Active Substance: NITISINONE
     Route: 048
     Dates: start: 201807
  4. NITISINONE [Suspect]
     Active Substance: NITISINONE
     Route: 048
     Dates: start: 201907
  5. NITISINONE [Suspect]
     Active Substance: NITISINONE
     Route: 048
     Dates: start: 202007
  6. NITISINONE [Suspect]
     Active Substance: NITISINONE
     Route: 048
     Dates: start: 202104
  7. NITISINONE [Suspect]
     Active Substance: NITISINONE
     Route: 048
     Dates: start: 202105
  8. NITISINONE [Suspect]
     Active Substance: NITISINONE
     Route: 048
     Dates: start: 201909
  9. NITISINONE [Suspect]
     Active Substance: NITISINONE
     Route: 048
     Dates: start: 202009
  10. NITISINONE [Suspect]
     Active Substance: NITISINONE
     Route: 048
     Dates: start: 202107
  11. NITISINONE [Suspect]
     Active Substance: NITISINONE
     Route: 048
     Dates: start: 202108
  12. NITISINONE [Suspect]
     Active Substance: NITISINONE
     Route: 048
     Dates: start: 202308

REACTIONS (9)
  - Seizure [Unknown]
  - Ocular hyperaemia [Unknown]
  - Eye pain [Unknown]
  - Eye pruritus [Unknown]
  - Conjunctivitis [Unknown]
  - Fall [Unknown]
  - Rash [Unknown]
  - Keratitis [Unknown]
  - Amino acid level increased [Unknown]

NARRATIVE: CASE EVENT DATE: 20190701
